FAERS Safety Report 8903290 (Version 2)
Quarter: 2013Q3

REPORT INFORMATION
  Report Type: Spontaneous
  Country: US (occurrence: US)
  Receive Date: 20121112
  Receipt Date: 20130927
  Transmission Date: 20140515
  Serious: Yes (Hospitalization, Other)
  Sender: FDA-Public Use
  Company Number: US-MERCK-1211USA002511

PATIENT
  Sex: Male

DRUGS (7)
  1. REBETOL [Suspect]
     Indication: HEPATITIS C
     Dosage: UNK
     Route: 048
     Dates: start: 20050107, end: 20060106
  2. REBETOL [Suspect]
     Dosage: UNK
     Route: 048
     Dates: end: 20071004
  3. REBETOL [Suspect]
     Dosage: UNK
     Route: 048
     Dates: start: 20121022
  4. PEGINTRON [Suspect]
     Indication: HEPATITIS C
     Dosage: REDIPEN
     Dates: start: 20121022
  5. PEGASYS [Suspect]
     Indication: HEPATITIS C
     Dosage: UNK
     Dates: start: 20050107, end: 20060106
  6. PEGASYS [Suspect]
     Dosage: UNK
     Dates: end: 20071004
  7. PEGASYS [Suspect]
     Dosage: UNK
     Dates: start: 20121022

REACTIONS (9)
  - Suicide attempt [Unknown]
  - Depression [Unknown]
  - Fatigue [Unknown]
  - Skin exfoliation [Unknown]
  - Drug ineffective [Unknown]
  - Malaise [Unknown]
  - Emotional disorder [Unknown]
  - Anaemia [Unknown]
  - Influenza like illness [Unknown]
